FAERS Safety Report 6333103-5 (Version None)
Quarter: 2009Q3

REPORT INFORMATION
  Report Type: 
  Country: None (occurrence: None)
  Receive Date: 20090828
  Receipt Date: 20090820
  Transmission Date: 20100115
  Serious: Yes (Other)
  Sender: FDA-Public Use
  Company Number: US-AVENTIS-200917417US

PATIENT
  Sex: Female

DRUGS (2)
  1. LANTUS [Suspect]
     Route: 058
     Dates: start: 20090401
  2. APIDRA [Suspect]
     Dosage: DOSE: 8 UNITS AM; 12 UNITS AT LUNCH; 22 UNITS PM
     Route: 051
     Dates: start: 20090401

REACTIONS (4)
  - DYSPNOEA [None]
  - SCRATCH [None]
  - SUICIDAL IDEATION [None]
  - URTICARIA [None]
